FAERS Safety Report 26164982 (Version 1)
Quarter: 2025Q4

REPORT INFORMATION
  Report Type: Spontaneous
  Country: US (occurrence: None)
  Receive Date: 20251216
  Receipt Date: 20251216
  Transmission Date: 20260118
  Serious: No
  Sender: FDA-CTU
  Company Number: None

PATIENT
  Age: 91 Year
  Sex: Female

DRUGS (2)
  1. JAKAFI [Suspect]
     Active Substance: RUXOLITINIB
  2. NEBIVOLOL [Suspect]
     Active Substance: NEBIVOLOL

REACTIONS (2)
  - Flatulence [None]
  - Drug interaction [None]

NARRATIVE: CASE EVENT DATE: 20251216
